FAERS Safety Report 5779333-2 (Version None)
Quarter: 2008Q2

REPORT INFORMATION
  Report Type: 
  Country: None (occurrence: None)
  Receive Date: 20080619
  Receipt Date: 20080616
  Transmission Date: 20081010
  Serious: Yes (Hospitalization)
  Sender: FDA-Public Use
  Company Number: US-BOEHRINGER INGELHEIM GMBH, GERMANY-2008-BP-09454BP

PATIENT
  Sex: Female

DRUGS (3)
  1. SPIRIVA [Suspect]
     Indication: EMPHYSEMA
     Dates: start: 20060311
  2. ADVAIR DISKUS 100/50 [Concomitant]
     Indication: DYSPNOEA
  3. ALBUTEROL SULFATE [Concomitant]
     Indication: DYSPNOEA

REACTIONS (3)
  - CARDIAC OPERATION [None]
  - CONSTIPATION [None]
  - DRUG INEFFECTIVE [None]
